FAERS Safety Report 22244431 (Version 1)
Quarter: 2023Q2

REPORT INFORMATION
  Report Type: Spontaneous
  Country: US (occurrence: None)
  Receive Date: 20230420
  Receipt Date: 20230420
  Transmission Date: 20230722
  Serious: Yes (Hospitalization)
  Sender: FDA-Public Use
  Company Number: None

PATIENT
  Age: 67 Year
  Sex: Male
  Weight: 79.8 kg

DRUGS (1)
  1. ABEMACICLIB [Suspect]
     Active Substance: ABEMACICLIB
     Indication: Bladder cancer
     Dosage: 200MG BID PO
     Route: 048
     Dates: start: 20230228, end: 20230331

REACTIONS (7)
  - Loss of consciousness [None]
  - Fall [None]
  - Urinary incontinence [None]
  - Musculoskeletal pain [None]
  - Back pain [None]
  - Skin abrasion [None]
  - Confusional state [None]

NARRATIVE: CASE EVENT DATE: 20230402
